FAERS Safety Report 13613508 (Version 2)
Quarter: 2018Q3

REPORT INFORMATION
  Report Type: Spontaneous
  Country: US (occurrence: US)
  Receive Date: 20170605
  Receipt Date: 20180919
  Transmission Date: 20181010
  Serious: No
  Sender: FDA-Public Use
  Company Number: US-BIOMARINAP-US-2017-114176

PATIENT
  Sex: Female
  Weight: 56.01 kg

DRUGS (1)
  1. KUVAN [Suspect]
     Active Substance: SAPROPTERIN DIHYDROCHLORIDE
     Indication: PHENYLKETONURIA
     Dosage: 1100 MG, QD
     Route: 048

REACTIONS (6)
  - Paranoia [Unknown]
  - Weight decreased [Unknown]
  - Anger [Unknown]
  - Anxiety [Unknown]
  - Restlessness [Unknown]
  - Tonsillitis [Unknown]
